FAERS Safety Report 4336608-1 (Version None)
Quarter: 2004Q2

REPORT INFORMATION
  Report Type: 
  Country: None (occurrence: None)
  Receive Date: 20040409
  Receipt Date: 20040409
  Transmission Date: 20050107
  Serious: Yes (Other)
  Sender: FDA-Public Use
  Company Number: None

PATIENT
  Age: 39 Year
  Sex: Female
  Weight: 49.8957 kg

DRUGS (1)
  1. GABITRIL [Suspect]
     Indication: INSOMNIA
     Dosage: 2 MG  3-4  X  AT N  ORAL
     Route: 048
     Dates: start: 20040405, end: 20040407

REACTIONS (8)
  - AGGRESSION [None]
  - AMNESIA [None]
  - COGNITIVE DISORDER [None]
  - CONTUSION [None]
  - FEELING ABNORMAL [None]
  - HEADACHE [None]
  - INTENTIONAL SELF-INJURY [None]
  - PHARMACEUTICAL PRODUCT COMPLAINT [None]
